FAERS Safety Report 5092913-5 (Version None)
Quarter: 2006Q3

REPORT INFORMATION
  Report Type: 
  Country: None (occurrence: None)
  Receive Date: 20060830
  Receipt Date: 20051011
  Transmission Date: 20061208
  Serious: No
  Sender: FDA-Public Use
  Company Number: US-BRISTOL-MYERS SQUIBB COMPANY-13141163

PATIENT
  Sex: Female

DRUGS (1)
  1. EXELDERM SOLN [Suspect]
     Route: 061
     Dates: start: 20051001

REACTIONS (1)
  - PRURITUS [None]
